FAERS Safety Report 9157895 (Version 2)
Quarter: 2013Q1

REPORT INFORMATION
  Report Type: Spontaneous
  Country: US (occurrence: None)
  Receive Date: 20130213
  Receipt Date: 20130304
  Transmission Date: 20140127
  Serious: Yes (Other)
  Sender: FDA-Public Use
  Company Number: USA/USA/13/0027882

PATIENT
  Age: 01 Year
  Sex: Female

DRUGS (4)
  1. LANSOPRAZOLE [Suspect]
     Indication: GASTROOESOPHAGEAL REFLUX DISEASE
     Route: 048
     Dates: start: 20121119
  2. LANSOPRAZOLE [Suspect]
     Indication: SANDIFER^S SYNDROME
     Route: 048
     Dates: start: 20121119
  3. MIRALAX [Concomitant]
  4. BIOGAIA PROBIOTIC (LACTOBACILLUS REUTERI) [Concomitant]

REACTIONS (5)
  - Abdominal distension [None]
  - Drug ineffective [None]
  - Drug intolerance [None]
  - Therapy change [None]
  - Drug effect increased [None]
